FAERS Safety Report 5219403-0 (Version None)
Quarter: 2006Q4

REPORT INFORMATION
  Report Type: 
  Country: None (occurrence: None)
  Receive Date: 20061201
  Receipt Date: 20060718
  Transmission Date: 20070319
  Serious: No
  Sender: FDA-Public Use
  Company Number: 2006PV017817

PATIENT
  Age: 68 Year
  Sex: Female
  Weight: 86.637 kg

DRUGS (12)
  1. BYETTA [Suspect]
     Indication: DIABETES MELLITUS NON-INSULIN-DEPENDENT
     Dosage: SEE IMAGE
     Route: 058
     Dates: start: 20060604, end: 20060703
  2. BYETTA [Suspect]
     Indication: DIABETES MELLITUS NON-INSULIN-DEPENDENT
     Dosage: SEE IMAGE
     Route: 058
     Dates: start: 20060704
  3. WARFARIN SODIUM [Suspect]
     Indication: ACQUIRED DYSFIBRINOGENAEMIA
     Dosage: 6 MG;QD;PO
     Route: 048
     Dates: start: 20020101, end: 20060717
  4. WARFARIN SODIUM [Suspect]
     Indication: CEREBROVASCULAR ACCIDENT
     Dosage: 6 MG;QD;PO
     Route: 048
     Dates: start: 20020101, end: 20060717
  5. WARFARIN SODIUM [Concomitant]
  6. METFORMIN HCL [Concomitant]
  7. CALCIUM WITH VITAMIN D [Concomitant]
  8. FOLIC ACID [Concomitant]
  9. ASPIRIN [Concomitant]
  10. ACCUPRIL [Concomitant]
  11. ZOCOR [Concomitant]
  12. GEMFIBROZIL [Concomitant]

REACTIONS (3)
  - DECREASED APPETITE [None]
  - INTERNATIONAL NORMALISED RATIO INCREASED [None]
  - WEIGHT DECREASED [None]
